FAERS Safety Report 9025399 (Version 2)
Quarter: 2013Q2

REPORT INFORMATION
  Report Type: Spontaneous
  Country: US (occurrence: US)
  Receive Date: 20130122
  Receipt Date: 20130607
  Transmission Date: 20140414
  Serious: No
  Sender: FDA-Public Use
  Company Number: US-OPTIMER PHARMACEUTICALS, INC.-20120176

PATIENT
  Age: 83 Year
  Sex: Female

DRUGS (4)
  1. DIFICID [Suspect]
     Indication: CLOSTRIDIUM DIFFICILE COLITIS
     Dosage: 200 MG, BID
     Route: 048
     Dates: start: 20110822, end: 20110907
  2. METRONIDAZOLE [Concomitant]
     Indication: CLOSTRIDIUM DIFFICILE COLITIS
     Dosage: UNK
  3. METRONIDAZOLE [Concomitant]
     Dosage: UNK
     Dates: start: 20110822, end: 20110823
  4. LEVOFLOXACIN [Concomitant]
     Dosage: UNK
     Dates: start: 20110822, end: 20110823

REACTIONS (3)
  - White blood cell count increased [Unknown]
  - Treatment failure [Unknown]
  - Off label use [Unknown]
